FAERS Safety Report 14449199 (Version 1)
Quarter: 2018Q1

REPORT INFORMATION
  Report Type: Spontaneous
  Country: US (occurrence: US)
  Receive Date: 20180127
  Receipt Date: 20180127
  Transmission Date: 20180509
  Serious: No
  Sender: FDA-Public Use
  Company Number: PHHY2018US011603

PATIENT

DRUGS (4)
  1. FLEXERIL [Suspect]
     Active Substance: CYCLOBENZAPRINE HYDROCHLORIDE
     Indication: MUSCLE SPASMS
     Dosage: UNK
     Route: 065
     Dates: start: 2016
  2. ADVAIR HFA [Suspect]
     Active Substance: FLUTICASONE PROPIONATE\SALMETEROL XINAFOATE
     Indication: PRODUCT USED FOR UNKNOWN INDICATION
     Dosage: UNK UNK, BID  (1 PUFFS)
     Route: 055
     Dates: start: 2013
  3. BREO ELLIPTA [Suspect]
     Active Substance: FLUTICASONE FUROATE\VILANTEROL TRIFENATATE
     Indication: PRODUCT USED FOR UNKNOWN INDICATION
     Dosage: UNK UNK, BID (1 PUFF)
     Route: 055
  4. DICLOFENAC SODIUM. [Suspect]
     Active Substance: DICLOFENAC SODIUM
     Indication: MUSCLE SPASMS
     Dosage: 10 MG, UNK
     Route: 061

REACTIONS (7)
  - Dysphonia [Unknown]
  - Intentional dose omission [Unknown]
  - Cough [Recovered/Resolved]
  - Drug ineffective [Unknown]
  - Muscle spasms [Recovered/Resolved]
  - Oropharyngeal pain [Unknown]
  - Intentional underdose [Unknown]

NARRATIVE: CASE EVENT DATE: 2013
